FAERS Safety Report 4322755-7 (Version None)
Quarter: 2004Q1

REPORT INFORMATION
  Report Type: 
  Country: None (occurrence: None)
  Receive Date: 20040324
  Receipt Date: 20040311
  Transmission Date: 20041129
  Serious: Yes (Disabling)
  Sender: FDA-Public Use
  Company Number: GB-GLAXOSMITHKLINE-B0326607A

PATIENT
  Age: 80 Year
  Sex: Female
  Weight: 12 kg

DRUGS (5)
  1. AVANDIA [Suspect]
     Indication: DIABETES MELLITUS
     Dosage: 4MG PER DAY
     Route: 048
     Dates: start: 20031117, end: 20040107
  2. GLIPIZIDE [Concomitant]
     Indication: DIABETES MELLITUS
     Dosage: 5MG PER DAY
     Route: 048
     Dates: start: 19980907
  3. PRAVASTATIN [Concomitant]
     Dosage: 40MG PER DAY
     Route: 048
     Dates: start: 20030616
  4. ASPIRIN [Concomitant]
     Indication: HYPERTENSION
     Dosage: 75MG PER DAY
     Route: 048
     Dates: start: 20030523
  5. CO-TENIDONE [Concomitant]
     Indication: HYPERTENSION
     Route: 048
     Dates: start: 19950516

REACTIONS (2)
  - CONFUSIONAL STATE [None]
  - HALLUCINATION, VISUAL [None]
